FAERS Safety Report 7891040-9 (Version None)
Quarter: 2011Q4

REPORT INFORMATION
  Report Type: 
  Country: None (occurrence: None)
  Receive Date: 20111103
  Receipt Date: 20111025
  Transmission Date: 20120403
  Serious: Yes (Hospitalization)
  Sender: FDA-Public Use
  Company Number: BR-ASTRAZENECA-2011SE64659

PATIENT
  Age: 53 Year
  Sex: Male
  Weight: 99 kg

DRUGS (9)
  1. HYDROCHLOROTHIAZIDE [Concomitant]
  2. ASPIRIN [Concomitant]
  3. RASILEZ [Concomitant]
  4. METFFORMIN HYDROCHLORIDE [Concomitant]
  5. METOPROLOL SUCCINATE [Suspect]
     Indication: HYPERTENSION
     Route: 048
     Dates: start: 20110501
  6. EXFORGE [Suspect]
     Indication: HYPERTENSION
     Dosage: 320/5 MG
     Route: 048
     Dates: start: 20110528, end: 20110712
  7. VYTORIN [Concomitant]
     Dosage: 10/20 MG
  8. DIOVAN TRIPLO [Suspect]
     Indication: HYPERTENSION
     Dosage: 160/12.5/5 MG ONCE A DAY
     Route: 048
     Dates: start: 20110501, end: 20110527
  9. EXFORGE [Suspect]
     Dosage: 320/10 MG
     Route: 048

REACTIONS (11)
  - RENAL CELL CARCINOMA [None]
  - BLOOD TRIGLYCERIDES INCREASED [None]
  - ELECTROCARDIOGRAM REPOLARISATION ABNORMALITY [None]
  - HYPERTENSION [None]
  - HEPATIC STEATOSIS [None]
  - LEFT VENTRICULAR FAILURE [None]
  - BLOOD CREATININE INCREASED [None]
  - BLOOD CHOLESTEROL INCREASED [None]
  - LEFT VENTRICULAR DYSFUNCTION [None]
  - VENTRICULAR HYPERTROPHY [None]
  - ARTERIOSCLEROSIS CORONARY ARTERY [None]
